FAERS Safety Report 10066453 (Version 2)
Quarter: 2015Q1

REPORT INFORMATION
  Report Type: Spontaneous
  Country: US (occurrence: None)
  Receive Date: 20140401
  Receipt Date: 20150331
  Transmission Date: 20150720
  Serious: Yes (Other)
  Sender: FDA-Public Use
  Company Number: PHEH2013US010572

PATIENT
  Age: 84 Year
  Sex: Male

DRUGS (15)
  1. EXELON PATCH [Suspect]
     Active Substance: RIVASTIGMINE
     Indication: DEMENTIA
     Dates: start: 20130605
  2. VITAMIN D3 [Concomitant]
     Active Substance: CHOLECALCIFEROL
  3. LISINOPRIL (LISINOPRIL) [Concomitant]
     Active Substance: LISINOPRIL
  4. ZANTAC [Concomitant]
     Active Substance: RANITIDINE HYDROCHLORIDE
  5. ASPIRIN. [Concomitant]
     Active Substance: ASPIRIN
  6. TAMSULOSIN (TAMSULOSIN) [Concomitant]
     Active Substance: TAMSULOSIN
  7. LORAZEPAM (LORAZEPAM) [Concomitant]
     Active Substance: LORAZEPAM
  8. MULTIPLE VITAMINS (ASCORBIC ACID, ERGOCALCIFEROL, FOLIC ACID, RETINOL, TOCOPHEROL, VITAMIN B NOS) [Concomitant]
  9. B COMPLEX (NICOTINAMIDE, PYRIDOXINE HYDROCHLORIDE, RIBOFLAVIN, THIAMINE HYDROCHLORIDE) [Concomitant]
  10. KLONOPIN [Concomitant]
     Active Substance: CLONAZEPAM
  11. CLONAZEPAM. [Suspect]
     Active Substance: CLONAZEPAM
     Indication: AUTONOMIC SEIZURE
  12. NAMENDA [Suspect]
     Active Substance: MEMANTINE HYDROCHLORIDE
     Route: 048
  13. OMPERAZOL ^ACYFABRIK^ (OMEPRAZOLE) [Concomitant]
  14. BABY ASPIRIN (ACETYLSALICYLIC ACID) [Concomitant]
     Active Substance: ASPIRIN
  15. POLYETHYLENE GLYCOL (MACROGOL) [Concomitant]

REACTIONS (20)
  - Paraesthesia [None]
  - Throat tightness [None]
  - Skin discolouration [None]
  - Application site rash [None]
  - Skin irritation [None]
  - Skin haemorrhage [None]
  - Dry mouth [None]
  - Skin disorder [None]
  - Depression [None]
  - Nausea [None]
  - Application site erythema [None]
  - Application site pruritus [None]
  - Skin reaction [None]
  - Speech disorder [None]
  - Drug administration error [None]
  - Lip swelling [None]
  - Vision blurred [None]
  - Hypersensitivity [None]
  - Chapped lips [None]
  - Headache [None]

NARRATIVE: CASE EVENT DATE: 201308
